FAERS Safety Report 17661067 (Version 1)
Quarter: 2020Q2

REPORT INFORMATION
  Report Type: Spontaneous
  Country: US (occurrence: US)
  Receive Date: 20200412
  Receipt Date: 20200412
  Transmission Date: 20200713
  Serious: Yes (Other)
  Sender: FDA-Public Use
  Company Number: None

PATIENT
  Age: 66 Year
  Sex: Female
  Weight: 67.5 kg

DRUGS (21)
  1. ENALAPRIL [Concomitant]
     Active Substance: ENALAPRIL
  2. GINKGO BILOBA [Concomitant]
     Active Substance: GINKGO
  3. VITAMIN B12 [Concomitant]
     Active Substance: CYANOCOBALAMIN
  4. ZINC. [Concomitant]
     Active Substance: ZINC
  5. ENALAPRIL MALEATE (VASOTEC) - 20 MG, LIGHT BEIGE, ROUND, W 926 [Suspect]
     Active Substance: ENALAPRIL MALEATE
     Indication: HYPERTENSION
     Route: 048
     Dates: start: 20000101
  6. OMEGA 3 [Concomitant]
     Active Substance: OMEGA-3 FATTY ACIDS
  7. ATORVASTATIN [Concomitant]
     Active Substance: ATORVASTATIN
  8. VITAMINS [Concomitant]
     Active Substance: VITAMINS
  9. VITAMIN D3 [Concomitant]
     Active Substance: CHOLECALCIFEROL
  10. LYSINE [Concomitant]
     Active Substance: LYSINE
  11. EVENING PRIMROSE OIL [Concomitant]
     Active Substance: EVENING PRIMROSE OIL\HERBALS
  12. RED RICE YEAST [Concomitant]
     Active Substance: DIETARY SUPPLEMENT
  13. BIOTIN [Concomitant]
     Active Substance: BIOTIN
  14. ALFALFA [Concomitant]
     Active Substance: ALFALFA
  15. HYDROCHLOROTHIAZIDE (25 MG, PEACH, ROUND, H 2) [Suspect]
     Active Substance: HYDROCHLOROTHIAZIDE
     Indication: HYPERTENSION
     Route: 048
     Dates: start: 20000101
  16. LACTOBACILLUS ACIDOPHILUS [Concomitant]
     Active Substance: LACTOBACILLUS ACIDOPHILUS
  17. CALCIUM W/ D [Concomitant]
  18. ECHINACEA W/GOLDENSEAL [Concomitant]
  19. CALCIUM [Concomitant]
     Active Substance: CALCIUM
  20. VITAMIN E [Concomitant]
     Active Substance: .ALPHA.-TOCOPHEROL
  21. VITAMIN B COMPLEX [Concomitant]
     Active Substance: CYANOCOBALAMIN\DEXPANTHENOL\NIACINAMIDE\PYRIDOXINE HYDROCHLORIDE\RIBOFLAVIN 5^-PHOSPHATE SODIUM\THIAMINE HYDROCHLORIDE\VITAMIN B COMPLEX

REACTIONS (9)
  - Condition aggravated [None]
  - Presyncope [None]
  - Burning mouth syndrome [None]
  - Feeding disorder [None]
  - Loss of personal independence in daily activities [None]
  - Blood pressure decreased [None]
  - Dyspnoea [None]
  - Pain [None]
  - Dizziness [None]
